FAERS Safety Report 24876832 (Version 1)
Quarter: 2025Q1

REPORT INFORMATION
  Report Type: Report from Study
  Country: US (occurrence: US)
  Receive Date: 20250123
  Receipt Date: 20250123
  Transmission Date: 20250408
  Serious: Yes (Hospitalization, Other)
  Sender: ALEXION PHARMACEUTICALS
  Company Number: US-AstraZeneca-CH-00789810A

PATIENT
  Weight: 67.1 kg

DRUGS (4)
  1. OSIMERTINIB [Suspect]
     Active Substance: OSIMERTINIB
     Indication: Lung neoplasm malignant
     Dosage: 80 MILLIGRAM, QD
  2. LATANOPROST [Concomitant]
     Active Substance: LATANOPROST
     Route: 065
  3. MEMANTINE [Concomitant]
     Active Substance: MEMANTINE
     Route: 065
  4. SERTRALINE HYDROCHLORIDE [Concomitant]
     Active Substance: SERTRALINE HYDROCHLORIDE
     Route: 065

REACTIONS (4)
  - Dementia [Unknown]
  - Syncope [Unknown]
  - Asthenia [Unknown]
  - Fatigue [Unknown]
